FAERS Safety Report 12073473 (Version 2)
Quarter: 2016Q1

REPORT INFORMATION
  Report Type: Spontaneous
  Country: JP (occurrence: JP)
  Receive Date: 20160212
  Receipt Date: 20160219
  Transmission Date: 20160526
  Serious: Yes (Death, Other)
  Sender: FDA-Public Use
  Company Number: JP-BRISTOL-MYERS SQUIBB COMPANY-BMS-2016-010687

PATIENT
  Age: 7 Decade
  Sex: Male

DRUGS (2)
  1. OPDIVO [Suspect]
     Active Substance: NIVOLUMAB
     Dosage: 20 MG, UNK
     Route: 041
  2. OPDIVO [Suspect]
     Active Substance: NIVOLUMAB
     Indication: NON-SMALL CELL LUNG CANCER
     Dosage: 100 MG, UNK
     Route: 041

REACTIONS (4)
  - Malignant neoplasm progression [Fatal]
  - Inappropriate schedule of drug administration [Unknown]
  - Haemoptysis [Fatal]
  - Off label use [Unknown]
